FAERS Safety Report 6237642-7 (Version None)
Quarter: 2009Q2

REPORT INFORMATION
  Report Type: 
  Country: None (occurrence: None)
  Receive Date: 20090616
  Receipt Date: 20090601
  Transmission Date: 20091009
  Serious: Yes (Other)
  Sender: FDA-Public Use
  Company Number: 20090202 /

PATIENT
  Age: 32 Year
  Sex: Female

DRUGS (8)
  1. HYDROXYZINE HCL [Suspect]
     Indication: MIGRAINE
     Dosage: 100 MG INTRAMUSCULAR
     Route: 030
     Dates: start: 20090401, end: 20090401
  2. RISPERDAL [Suspect]
     Indication: MIGRAINE
     Dosage: 2 MG ORAL
     Route: 048
     Dates: start: 20090401
  3. TOPAMAX [Suspect]
     Indication: MIGRAINE
     Dosage: 15 MG ORAL
     Route: 048
     Dates: start: 20090401
  4. AIRMAX INHALER [Concomitant]
  5. ADVIL [Concomitant]
  6. NSAID'S [Concomitant]
  7. ASPARTAMINE [Concomitant]
  8. IMITREX [Concomitant]

REACTIONS (4)
  - AKATHISIA [None]
  - BLOOD PRESSURE INCREASED [None]
  - ELECTROCARDIOGRAM CHANGE [None]
  - SELF-MEDICATION [None]
